FAERS Safety Report 15746049 (Version 1)
Quarter: 2018Q4

REPORT INFORMATION
  Report Type: Spontaneous
  Country: US (occurrence: US)
  Receive Date: 20181220
  Receipt Date: 20181220
  Transmission Date: 20190205
  Serious: No
  Sender: FDA-Public Use
  Company Number: US-PFIZER INC-2018524046

PATIENT
  Age: 76 Year
  Sex: Female
  Weight: 49.9 kg

DRUGS (4)
  1. VERAPAMIL [Concomitant]
     Active Substance: VERAPAMIL HYDROCHLORIDE
     Indication: BLOOD PRESSURE ABNORMAL
     Dosage: 120 MG, 1X/DAY (IN MORNING)
  2. PROPRANOLOL [Concomitant]
     Active Substance: PROPRANOLOL HYDROCHLORIDE
     Indication: BLOOD PRESSURE ABNORMAL
     Dosage: 80 MG, 1X/DAY (IN MORNING)
  3. PREMARIN [Concomitant]
     Active Substance: ESTROGENS, CONJUGATED
     Indication: HYSTEROSALPINGO-OOPHORECTOMY
     Dosage: 0.45 MG, 1X/DAY (IN MORNING)
  4. ADVIL PM [Suspect]
     Active Substance: DIPHENHYDRAMINE CITRATE\IBUPROFEN
     Indication: INSOMNIA
     Dosage: 1 DF, 1X/DAY (ONE PILL PER NIGHT)

REACTIONS (6)
  - Panic attack [Unknown]
  - Sleep disorder [Unknown]
  - Circumstance or information capable of leading to medication error [Unknown]
  - Anxiety [Unknown]
  - Nervousness [Unknown]
  - Thinking abnormal [Unknown]

NARRATIVE: CASE EVENT DATE: 2018
